FAERS Safety Report 21558883 (Version 4)
Quarter: 2022Q4

REPORT INFORMATION
  Report Type: Spontaneous
  Country: US (occurrence: US)
  Receive Date: 20221107
  Receipt Date: 20221121
  Transmission Date: 20230113
  Serious: Yes (Other)
  Sender: FDA-Public Use
  Company Number: US-009507513-2210USA010585

PATIENT
  Sex: Female
  Weight: 90.249 kg

DRUGS (11)
  1. KEYTRUDA [Suspect]
     Active Substance: PEMBROLIZUMAB
     Indication: Malignant melanoma stage IV
     Dosage: UNK, Q3W
     Route: 042
     Dates: start: 20220823, end: 20220823
  2. KEYTRUDA [Suspect]
     Active Substance: PEMBROLIZUMAB
     Dosage: UNK
     Dates: start: 20221025, end: 20221025
  3. NASAL [SODIUM CHLORIDE] [Concomitant]
     Dosage: 1 NASAL SPRAY, QD
     Route: 045
  4. FEXOFENADINE [Concomitant]
     Active Substance: FEXOFENADINE HYDROCHLORIDE
     Dosage: HALF TABLET, QD
  5. PROBIOTICS NOS [Concomitant]
     Active Substance: PROBIOTICS NOS
     Dosage: UNK, QD
     Route: 048
  6. PREDNISOLONE [Concomitant]
     Active Substance: PREDNISOLONE
     Dosage: EVERY HOUR AS NEEDED WHILE AWAKE
     Route: 047
  7. LEVOTHYROXINE [Concomitant]
     Active Substance: LEVOTHYROXINE
     Dosage: 1 CAPSULE, QD
     Route: 048
  8. LIOTHYRONINE [Concomitant]
     Active Substance: LIOTHYRONINE
     Dosage: 5 MICROGRAM, QD
     Route: 048
  9. SIMPLY SALINE [Concomitant]
     Dosage: UNK, BID
  10. ASPIRIN [Concomitant]
     Active Substance: ASPIRIN
     Dosage: 81 MILLIGRAM, QD
     Route: 048
  11. VITAMIN C [Concomitant]
     Active Substance: ASCORBIC ACID
     Dosage: 1000 MILLIGRAM, QOD
     Route: 048

REACTIONS (19)
  - Papilloedema [Not Recovered/Not Resolved]
  - Dry age-related macular degeneration [Not Recovered/Not Resolved]
  - Arteriosclerosis coronary artery [Unknown]
  - Nephrolithiasis [Unknown]
  - Mean cell haemoglobin concentration decreased [Unknown]
  - Eosinophil percentage increased [Unknown]
  - Hypoacusis [Not Recovered/Not Resolved]
  - Diverticulum intestinal [Unknown]
  - Spinal osteoarthritis [Unknown]
  - Vitreous floaters [Unknown]
  - Photopsia [Unknown]
  - Lymphadenopathy [Recovering/Resolving]
  - Atrioventricular block [Unknown]
  - Bundle branch block [Unknown]
  - Obstructive sleep apnoea syndrome [Unknown]
  - Dry eye [Unknown]
  - Rash pruritic [Unknown]
  - Fatigue [Unknown]
  - Rash maculo-papular [Unknown]

NARRATIVE: CASE EVENT DATE: 20220101
